FAERS Safety Report 4562504-0 (Version None)
Quarter: 2005Q1

REPORT INFORMATION
  Report Type: 
  Country: None (occurrence: None)
  Receive Date: 20050112
  Receipt Date: 20050112
  Transmission Date: 20050727
  Serious: Yes (Other)
  Sender: FDA-Public Use
  Company Number: None

PATIENT
  Sex: Female
  Weight: 57.6068 kg

DRUGS (2)
  1. ISOPTIN SR [Suspect]
     Indication: HYPERTENSION
     Dosage: 120 MG DAILY
  2. ISOPTIN SR [Suspect]
     Indication: PALPITATIONS
     Dosage: 120 MG DAILY

REACTIONS (2)
  - DRUG INEFFECTIVE [None]
  - PHARMACEUTICAL PRODUCT COMPLAINT [None]
